FAERS Safety Report 24093112 (Version 1)
Quarter: 2024Q3

REPORT INFORMATION
  Report Type: Spontaneous
  Country: GB (occurrence: GB)
  Receive Date: 20240715
  Receipt Date: 20240715
  Transmission Date: 20241016
  Serious: Yes (Other)
  Sender: TEVA
  Company Number: GB-MHRA-TPP26809432C11012995YC1720084451269

PATIENT
  Age: 85 Year
  Sex: Male
  Weight: 93 kg

DRUGS (18)
  1. LEVOFLOXACIN [Suspect]
     Active Substance: LEVOFLOXACIN
     Indication: Product used for unknown indication
     Route: 065
  2. CETRABEN [Concomitant]
     Indication: Product used for unknown indication
     Dosage: USE AS DIRECTED
     Route: 065
     Dates: start: 20231205
  3. IBUPROFEN [Concomitant]
     Active Substance: IBUPROFEN
     Indication: Product used for unknown indication
     Dosage: APPLY 3-4 TIMES/DAY
     Route: 065
     Dates: start: 20240426, end: 20240503
  4. EDOXABAN [Concomitant]
     Active Substance: EDOXABAN
     Indication: Product used for unknown indication
     Dosage: TAKE ONE TABLET ONCE DAILY
     Route: 065
     Dates: start: 20231205
  5. METFORMIN [Concomitant]
     Active Substance: METFORMIN HYDROCHLORIDE
     Indication: Product used for unknown indication
     Dosage: TAKE ONE TWICE DAILY
     Route: 065
     Dates: start: 20231205
  6. RAMIPRIL [Concomitant]
     Active Substance: RAMIPRIL
     Indication: Product used for unknown indication
     Route: 065
     Dates: start: 20231205
  7. ALLOPURINOL [Concomitant]
     Active Substance: ALLOPURINOL
     Indication: Product used for unknown indication
     Route: 065
     Dates: start: 20231205
  8. OMEPRAZOLE [Concomitant]
     Active Substance: OMEPRAZOLE
     Indication: Prophylaxis against gastrointestinal ulcer
     Dosage: 1 OD FOR NSAID GASTROPROTECTION
     Route: 065
     Dates: start: 20231205
  9. QUININE SULFATE [Concomitant]
     Active Substance: QUININE SULFATE
     Indication: Muscle spasms
     Dosage: TIME INTERVAL: AS NECESSARY: AT NIGHT  WHEN REQUIRED FOR MUSCLE CRAMPS. ...
     Route: 065
     Dates: start: 20240611
  10. VENTOLIN [Concomitant]
     Active Substance: ALBUTEROL SULFATE
     Indication: Asthma
     Dosage: INHALE 2 DOSES AS NEEDED FOR ASTHMA
     Route: 065
     Dates: start: 20231205
  11. TOLTERODINE TARTRATE [Concomitant]
     Active Substance: TOLTERODINE TARTRATE
     Indication: Product used for unknown indication
     Route: 065
     Dates: start: 20231205
  12. ACETAMINOPHEN [Concomitant]
     Active Substance: ACETAMINOPHEN
     Indication: Product used for unknown indication
     Dosage: 1-2   4-6 HOURLY BUT MAX OF 8 IN 24HRS
     Route: 065
     Dates: start: 20231205
  13. PRAVASTATIN [Concomitant]
     Active Substance: PRAVASTATIN
     Indication: Blood cholesterol
     Dosage: AT NIGHT TO LOWER CHOLESTEROL
     Route: 065
     Dates: start: 20231205
  14. BISOPROLOL [Concomitant]
     Active Substance: BISOPROLOL\BISOPROLOL FUMARATE
     Indication: Product used for unknown indication
     Dosage: ONE DAILY
     Route: 065
     Dates: start: 20231205
  15. HYDROXYZINE [Concomitant]
     Active Substance: HYDROXYZINE HYDROCHLORIDE
     Indication: Product used for unknown indication
     Dosage: AT NIGHT
     Route: 065
     Dates: start: 20231205
  16. BECLOMETHASONE\FORMOTEROL [Concomitant]
     Active Substance: BECLOMETHASONE\FORMOTEROL
     Indication: Product used for unknown indication
     Dosage: PUFF
     Route: 065
     Dates: start: 20231205
  17. CARBOCYSTEINE [Concomitant]
     Active Substance: CARBOCYSTEINE
     Indication: Product used for unknown indication
     Dosage: ONE CAPSULE UP TO 3 TIMES DAILY
     Route: 065
     Dates: start: 20231205
  18. FINASTERIDE [Concomitant]
     Active Substance: FINASTERIDE
     Indication: Product used for unknown indication
     Route: 065
     Dates: start: 20231205

REACTIONS (1)
  - Rash [Recovered/Resolved]
